FAERS Safety Report 24561043 (Version 1)
Quarter: 2024Q4

REPORT INFORMATION
  Report Type: Spontaneous
  Country: US (occurrence: US)
  Receive Date: 20241029
  Receipt Date: 20241029
  Transmission Date: 20250115
  Serious: No
  Sender: NOVARTIS
  Company Number: US-002147023-NVSC2024US210320

PATIENT
  Sex: Female
  Weight: 54 kg

DRUGS (1)
  1. SCEMBLIX [Suspect]
     Active Substance: ASCIMINIB HYDROCHLORIDE
     Indication: Myeloid leukaemia
     Dosage: 40 MG, BID
     Route: 048

REACTIONS (2)
  - Herpes zoster [Unknown]
  - Neuralgia [Unknown]
